FAERS Safety Report 14356300 (Version 2)
Quarter: 2019Q2

REPORT INFORMATION
  Report Type: Spontaneous
  Country: US (occurrence: US)
  Receive Date: 20180105
  Receipt Date: 20190606
  Transmission Date: 20190711
  Serious: No
  Sender: FDA-Public Use
  Company Number: US-ALLERGAN-1747183US

PATIENT
  Sex: Female

DRUGS (2)
  1. KYBELLA [Suspect]
     Active Substance: DEOXYCHOLIC ACID
     Indication: PRODUCT USED FOR UNKNOWN INDICATION
     Dosage: UNK, SINGLE
     Route: 058
     Dates: start: 2017, end: 2017
  2. KYBELLA [Suspect]
     Active Substance: DEOXYCHOLIC ACID
     Dosage: UNK, SINGLE
     Route: 058
     Dates: start: 20180803, end: 20180803

REACTIONS (6)
  - Injection site pain [Unknown]
  - Swelling [Unknown]
  - Contusion [Unknown]
  - Injection site hypoaesthesia [Unknown]
  - Injection site erythema [Unknown]
  - Injection site haemorrhage [Unknown]
